FAERS Safety Report 8394903-3 (Version None)
Quarter: 2012Q2

REPORT INFORMATION
  Report Type: 
  Country: None (occurrence: None)
  Receive Date: 20120530
  Receipt Date: 20110425
  Transmission Date: 20120825
  Serious: No
  Sender: FDA-Public Use
  Company Number: US-GLAXOSMITHKLINE-A0925185A

PATIENT
  Age: 71 Year
  Sex: Female

DRUGS (13)
  1. PROCARDIA XL [Concomitant]
     Dosage: 30MGD PER DAY
  2. ZETIA [Concomitant]
     Dosage: 10MGD PER DAY
  3. FLOLAN [Suspect]
     Indication: PULMONARY ARTERIAL HYPERTENSION
     Dosage: 7NGKM UNKNOWN
     Route: 042
     Dates: start: 20110408
  4. FLOLAN [Suspect]
     Indication: PULMONARY ARTERIAL HYPERTENSION
     Route: 042
     Dates: start: 20110408
  5. LASIX [Concomitant]
     Dosage: 40MG TWICE PER DAY
  6. COUMADIN [Concomitant]
     Dosage: 7MGD PER DAY
  7. AMITRIPTYLINE HCL [Concomitant]
     Dosage: 50MG AT NIGHT
  8. ZYRTEC [Concomitant]
     Dosage: 10MGD PER DAY
  9. PROTONIX [Concomitant]
     Dosage: 40MGD PER DAY
  10. ELMIRON [Concomitant]
     Dosage: 100MGD PER DAY
  11. FERROUS SULFATE TAB [Concomitant]
     Dosage: 325MG TWICE PER DAY
  12. POTASSIUM CHLORIDE [Concomitant]
     Dosage: 30MEQ TWICE PER DAY
  13. CIPROFLOXACIN HCL [Concomitant]
     Dosage: 500MG TWICE PER DAY

REACTIONS (3)
  - DIARRHOEA [None]
  - URINARY TRACT INFECTION [None]
  - POLLAKIURIA [None]
